FAERS Safety Report 7374446-6 (Version None)
Quarter: 2011Q1

REPORT INFORMATION
  Report Type: 
  Country: None (occurrence: None)
  Receive Date: 20110325
  Receipt Date: 20110316
  Transmission Date: 20110831
  Serious: Yes (Hospitalization)
  Sender: FDA-Public Use
  Company Number: US-JNJFOC-20061201507

PATIENT
  Age: 74 Year
  Sex: Male

DRUGS (2)
  1. REQUIP [Suspect]
     Indication: MEDICATION ERROR
     Dosage: 0.5 MG AT NIGHT
     Route: 048
  2. RISPERDAL [Suspect]
     Indication: PRODUCT USED FOR UNKNOWN INDICATION
     Dosage: 0.5 MG AT NIGHT
     Route: 048

REACTIONS (2)
  - COMPRESSION FRACTURE [None]
  - DRUG DISPENSING ERROR [None]
